FAERS Safety Report 4507010-4 (Version None)
Quarter: 2004Q4

REPORT INFORMATION
  Report Type: 
  Country: None (occurrence: None)
  Receive Date: 20041117
  Receipt Date: 20041109
  Transmission Date: 20050328
  Serious: Yes (Life-Threatening, Hospitalization)
  Sender: FDA-Public Use
  Company Number: 2003JP005665

PATIENT
  Age: 74 Year
  Sex: Male
  Weight: 43 kg

DRUGS (8)
  1. TACROLIMUS CAPSULES (TACROLIMUS CAPSULES) [Suspect]
     Indication: MYASTHENIA GRAVIS
     Dosage: 2.00 MG, 1.00 MG, UID/QD,ORAL
     Route: 048
     Dates: start: 20030218, end: 20030316
  2. TACROLIMUS CAPSULES (TACROLIMUS CAPSULES) [Suspect]
     Indication: MYASTHENIA GRAVIS
     Dosage: 2.00 MG, 1.00 MG, UID/QD,ORAL
     Route: 048
     Dates: start: 20021224, end: 20030317
  3. PREDNISOLONE [Suspect]
     Dosage: 15 MG, UID, QD
  4. FAMOTIDINE [Concomitant]
  5. SELBEX (TEPRENONE) [Concomitant]
  6. MESTINON [Concomitant]
  7. BISOLVON (BROMHEXINE HYDROCHLORIDE) [Concomitant]
  8. LAC B (LACTOBACILLUS BIFIDUS, LYOPHILIZED) [Concomitant]

REACTIONS (1)
  - MENINGITIS CRYPTOCOCCAL [None]
